FAERS Safety Report 6640710-9 (Version None)
Quarter: 2010Q1

REPORT INFORMATION
  Report Type: 
  Country: None (occurrence: None)
  Receive Date: 20100318
  Receipt Date: 20100305
  Transmission Date: 20100710
  Serious: Yes (Hospitalization)
  Sender: FDA-Public Use
  Company Number: US-ELI_LILLY_AND_COMPANY-US201001002903

PATIENT
  Sex: Female
  Weight: 99.773 kg

DRUGS (7)
  1. BYETTA [Suspect]
     Dosage: UNK, UNKNOWN
     Dates: start: 20051001, end: 20060709
  2. INSULIN [Concomitant]
     Indication: DIABETES MELLITUS
     Dosage: UNK, UNKNOWN
     Route: 065
  3. SIMVASTATIN [Concomitant]
     Dosage: 40 MG, DAILY (1/D)
  4. ATIVAN [Concomitant]
     Dosage: 1 MG, EACH EVENING
     Route: 065
  5. CEFTIN [Concomitant]
     Dosage: UNK, UNKNOWN
     Route: 065
  6. FLAGYL [Concomitant]
     Dosage: UNK, UNKNOWN
     Route: 065
  7. TYLENOL                                 /SCH/ [Concomitant]
     Dosage: UNK, UNKNOWN
     Route: 065

REACTIONS (5)
  - ABDOMINAL PAIN [None]
  - DIARRHOEA [None]
  - NAUSEA [None]
  - PANCREATITIS ACUTE [None]
  - VOMITING [None]
